FAERS Safety Report 5889535-2 (Version None)
Quarter: 2008Q3

REPORT INFORMATION
  Report Type: 
  Country: None (occurrence: None)
  Receive Date: 20080919
  Receipt Date: 20080909
  Transmission Date: 20090109
  Serious: Yes (Other)
  Sender: FDA-Public Use
  Company Number: US-ELI_LILLY_AND_COMPANY-US200809002803

PATIENT
  Sex: Male

DRUGS (3)
  1. CIALIS [Suspect]
  2. LEVITRA [Concomitant]
     Route: 048
  3. VIAGRA [Concomitant]
     Indication: SURGERY
     Dosage: UNK, DAILY (1/D)
     Route: 048

REACTIONS (2)
  - CYANOPSIA [None]
  - RETINAL ISCHAEMIA [None]
